FAERS Safety Report 4778940-3 (Version None)
Quarter: 2005Q3

REPORT INFORMATION
  Report Type: 
  Country: None (occurrence: None)
  Receive Date: 20050922
  Receipt Date: 20050901
  Transmission Date: 20060218
  Serious: Yes (Disabling)
  Sender: FDA-Public Use
  Company Number: ST-2005-008593

PATIENT
  Age: 66 Year
  Sex: Male

DRUGS (18)
  1. OLMESARTAN [Suspect]
     Indication: DIABETES MELLITUS NON-INSULIN-DEPENDENT
     Dosage: 10 MG QD PO
     Route: 048
     Dates: start: 20050611, end: 20050722
  2. OLMESARTAN [Suspect]
     Indication: DIABETIC NEPHROPATHY
     Dosage: 10 MG QD PO
     Route: 048
     Dates: start: 20050611, end: 20050722
  3. OLMESARTAN [Suspect]
     Indication: DIABETES MELLITUS NON-INSULIN-DEPENDENT
     Dosage: 20 MG QD PO
     Route: 048
     Dates: start: 20050723, end: 20050819
  4. OLMESARTAN [Suspect]
     Indication: DIABETIC NEPHROPATHY
     Dosage: 20 MG QD PO
     Route: 048
     Dates: start: 20050723, end: 20050819
  5. OLMESARTAN [Suspect]
     Indication: DIABETES MELLITUS NON-INSULIN-DEPENDENT
     Dosage: 40 MG QD PO
     Route: 048
     Dates: start: 20050820
  6. OLMESARTAN [Suspect]
     Indication: DIABETIC NEPHROPATHY
     Dosage: 40 MG QD PO
     Route: 048
     Dates: start: 20050820
  7. PLACEBO [Suspect]
     Dosage: PLACEBO
     Dates: start: 20050326, end: 20050610
  8. PLACEBO [Suspect]
     Dosage: 10 MG QD PO
     Route: 048
     Dates: start: 20050611, end: 20050722
  9. PLACEBO [Suspect]
     Dosage: 20 MG QD PO
     Route: 048
     Dates: start: 20050723, end: 20050819
  10. PLACEBO [Suspect]
     Dosage: 40 MG QD PO
     Route: 048
     Dates: start: 20050820
  11. AMLODIPINE BESYLATE [Concomitant]
  12. EPADEL [Concomitant]
  13. ALINAMIN F [Concomitant]
  14. GLYBURIDE [Concomitant]
  15. KINEDAK [Concomitant]
  16. EUGLUCON [Concomitant]
  17. ARGAMATE [Concomitant]
  18. LIPOVAS ^BANYU^ [Concomitant]

REACTIONS (1)
  - CEREBRAL INFARCTION [None]
